FAERS Safety Report 24313398 (Version 1)
Quarter: 2024Q3

REPORT INFORMATION
  Report Type: Spontaneous
  Country: US (occurrence: None)
  Receive Date: 20240912
  Receipt Date: 20240912
  Transmission Date: 20241016
  Serious: Yes (Disabling)
  Sender: Public
  Company Number: None

PATIENT
  Age: 46 Year
  Sex: Female
  Weight: 93.89 kg

DRUGS (24)
  1. NURTEC ODT [Suspect]
     Active Substance: RIMEGEPANT SULFATE
     Indication: Migraine prophylaxis
     Dosage: OTHER FREQUENCY : IN THE MORNING;?
     Route: 048
     Dates: start: 202404, end: 20240828
  2. PROZAC [Concomitant]
     Active Substance: FLUOXETINE HYDROCHLORIDE
  3. BUSPAR [Concomitant]
     Active Substance: BUSPIRONE HYDROCHLORIDE
  4. NAMNDA [Concomitant]
  5. LYRICA [Concomitant]
     Active Substance: PREGABALIN
  6. BACLOFEN [Concomitant]
     Active Substance: BACLOFEN
  7. KLONEPIN [Concomitant]
  8. MAXALT [Concomitant]
     Active Substance: RIZATRIPTAN BENZOATE
  9. METHOCARBAMOL [Concomitant]
     Active Substance: METHOCARBAMOL
  10. NALTROXONE [Concomitant]
  11. ESTRIDOL [Concomitant]
  12. ADDERALL [Concomitant]
     Active Substance: AMPHETAMINE ASPARTATE\AMPHETAMINE SULFATE\DEXTROAMPHETAMINE SACCHARATE\DEXTROAMPHETAMINE SULFATE
  13. PROMETHAZINE HYDROCHLORIDE [Concomitant]
     Active Substance: PROMETHAZINE HYDROCHLORIDE
  14. MAGNESIUM CHLORIDE [Concomitant]
     Active Substance: MAGNESIUM CHLORIDE
  15. VITAMIN B COMPLEX [Concomitant]
     Active Substance: CYANOCOBALAMIN\DEXPANTHENOL\NIACINAMIDE\PYRIDOXINE HYDROCHLORIDE\RIBOFLAVIN 5^-PHOSPHATE SODIUM\THIA
  16. FISH OIL [Concomitant]
     Active Substance: FISH OIL
  17. CANNABIS SATIVA SUBSP. INDICA TOP [Concomitant]
     Active Substance: CANNABIS SATIVA SUBSP. INDICA TOP
  18. CANNABIDIOL [Concomitant]
     Active Substance: CANNABIDIOL
  19. TYLENOL [Concomitant]
     Active Substance: ACETAMINOPHEN
  20. IBUPROFEN [Concomitant]
     Active Substance: IBUPROFEN
  21. ASPIRIN [Concomitant]
     Active Substance: ASPIRIN
  22. BIOFREEZE [Concomitant]
     Active Substance: MENTHOL
  23. LIDOCAINE [Concomitant]
     Active Substance: LIDOCAINE
  24. TIGER BALM [Concomitant]
     Active Substance: CAMPHOR (SYNTHETIC)\CAPSICUM OLEORESIN\MENTHOL\METHYL SALICYLATE

REACTIONS (9)
  - Back pain [None]
  - Musculoskeletal stiffness [None]
  - Arthralgia [None]
  - Pain in extremity [None]
  - Gait disturbance [None]
  - Fatigue [None]
  - Asthenia [None]
  - Asthenia [None]
  - Neuropathy peripheral [None]

NARRATIVE: CASE EVENT DATE: 20240501
